FAERS Safety Report 11813993 (Version 1)
Quarter: 2015Q4

REPORT INFORMATION
  Report Type: Spontaneous
  Country: GB (occurrence: GB)
  Receive Date: 20151209
  Receipt Date: 20151209
  Transmission Date: 20160305
  Serious: Yes (Other)
  Sender: FDA-Public Use
  Company Number: GB-TEVA-616839ISR

PATIENT
  Sex: Female
  Weight: 4.19 kg

DRUGS (4)
  1. OCTREOTIDE. [Suspect]
     Active Substance: OCTREOTIDE
     Indication: HYPERINSULINISM
     Route: 058
  2. DEXTROSE. [Concomitant]
     Active Substance: DEXTROSE
     Indication: HYPERINSULINISM
  3. DIAZOXIDE [Concomitant]
     Active Substance: DIAZOXIDE
     Indication: HYPERINSULINISM
  4. GLUCAGON. [Concomitant]
     Active Substance: GLUCAGON
     Indication: HYPERINSULINISM
     Route: 042

REACTIONS (2)
  - Cardiac failure [Unknown]
  - Liver disorder [Unknown]
